FAERS Safety Report 14288227 (Version 7)
Quarter: 2019Q1

REPORT INFORMATION
  Report Type: Spontaneous
  Country: FR (occurrence: IT)
  Receive Date: 20171214
  Receipt Date: 20190222
  Transmission Date: 20190417
  Serious: Yes (Hospitalization, Other)
  Sender: FDA-Public Use
  Company Number: IT-TEVA-2017-IT-830519

PATIENT
  Age: 41 Year
  Sex: Female

DRUGS (7)
  1. LEUPRORELIN ACETATE [Suspect]
     Active Substance: LEUPROLIDE ACETATE
     Indication: TRANSGENDER HORMONAL THERAPY
     Route: 065
  2. ESTRADIOL. [Suspect]
     Active Substance: ESTRADIOL
     Indication: TRANSGENDER HORMONAL THERAPY
     Dosage: 2 MILLIGRAM DAILY;
     Route: 062
  3. ESTRADIOL. [Suspect]
     Active Substance: ESTRADIOL
     Indication: HORMONE SUPPRESSION THERAPY
     Dosage: 3 MILLIGRAM DAILY;
     Route: 062
  4. ESTRADIOL. [Suspect]
     Active Substance: ESTRADIOL
     Indication: FEMINISATION ACQUIRED
     Dosage: 1 MILLIGRAM DAILY;
     Route: 062
  5. CYPROTERONE ACETATE [Suspect]
     Active Substance: CYPROTERONE ACETATE
     Indication: FEMINISATION ACQUIRED
  6. LEUPRORELIN ACETATE [Suspect]
     Active Substance: LEUPROLIDE ACETATE
     Indication: FEMINISATION ACQUIRED
  7. CYPROTERONE ACETATE [Suspect]
     Active Substance: CYPROTERONE ACETATE
     Indication: TRANSGENDER HORMONAL THERAPY
     Dosage: 50 MILLIGRAM DAILY;
     Route: 065

REACTIONS (4)
  - Prosopagnosia [Unknown]
  - Meningioma [Recovered/Resolved]
  - Reading disorder [Unknown]
  - Off label use [Unknown]
